FAERS Safety Report 5564721-X (Version None)
Quarter: 2007Q4

REPORT INFORMATION
  Report Type: 
  Country: None (occurrence: None)
  Receive Date: 20071212
  Receipt Date: 20071128
  Transmission Date: 20080405
  Serious: Yes (Death, Hospitalization, Other)
  Sender: FDA-Public Use
  Company Number: A-CH2007-18688

PATIENT
  Age: 67 Year
  Sex: Female

DRUGS (10)
  1. TRACLEER [Suspect]
     Indication: PULMONARY HYPERTENSION
     Dosage: 125 MG, BID, ORAL; 62.5 ,G. BOD. PRA;
     Route: 048
     Dates: start: 20040329, end: 20040426
  2. TRACLEER [Suspect]
     Indication: PULMONARY HYPERTENSION
     Dosage: 125 MG, BID, ORAL; 62.5 ,G. BOD. PRA;
     Route: 048
     Dates: start: 20040427, end: 20040820
  3. SINTROM [Concomitant]
  4. NOVOMIX (INSULIN ASPART) [Concomitant]
  5. DIGIMERCK (DIGITOXIN) [Concomitant]
  6. LASIX [Concomitant]
  7. CONCOR (BISOPROLOL FUMARATE) [Concomitant]
  8. RENITEC (ENALAPRIL) [Concomitant]
  9. OMEPRAZOLE [Concomitant]
  10. AQUAPHORIL (XIPAMIDE) [Concomitant]

REACTIONS (5)
  - ACTIVATED PARTIAL THROMBOPLASTIN TIME PROLONGED [None]
  - CEREBRAL HAEMORRHAGE [None]
  - FALL [None]
  - INTERNATIONAL NORMALISED RATIO INCREASED [None]
  - PROTHROMBIN LEVEL DECREASED [None]
